FAERS Safety Report 4519720-3 (Version None)
Quarter: 2004Q4

REPORT INFORMATION
  Report Type: 
  Country: None (occurrence: None)
  Receive Date: 20041206
  Receipt Date: 20041022
  Transmission Date: 20050328
  Serious: Yes (Life-Threatening, Other)
  Sender: FDA-Public Use
  Company Number: PHBS2004JP14254

PATIENT
  Age: 77 Year
  Sex: Female

DRUGS (3)
  1. DIOVAN [Suspect]
     Indication: HYPERTENSION
     Dosage: 80 MG, QD
     Route: 048
     Dates: end: 20040110
  2. ADALAT [Concomitant]
     Dosage: 20 MG, UNK
     Route: 048
  3. GASMOTIN [Concomitant]
     Dosage: 15 MG, UNK
     Route: 048

REACTIONS (6)
  - AGITATION [None]
  - ANOREXIA [None]
  - ANXIETY [None]
  - DEPRESSION [None]
  - INSOMNIA [None]
  - RESTLESSNESS [None]
